FAERS Safety Report 4351475-8 (Version None)
Quarter: 2004Q2

REPORT INFORMATION
  Report Type: 
  Country: None (occurrence: None)
  Receive Date: 20040429
  Receipt Date: 20040429
  Transmission Date: 20050107
  Serious: Yes (Hospitalization)
  Sender: FDA-Public Use
  Company Number: None

PATIENT
  Age: 67 Year
  Sex: Male
  Weight: 105.2345 kg

DRUGS (8)
  1. QUADRAMET [Suspect]
     Indication: PROSTATE CANCER
     Dosage: 126 MCI
     Dates: start: 20040407
  2. LUPRON [Concomitant]
  3. CASODEX [Concomitant]
  4. AVANDIA [Concomitant]
  5. ATENOLOL [Concomitant]
  6. LIPITOR [Concomitant]
  7. ATACAND [Concomitant]
  8. ASPIRIN [Concomitant]

REACTIONS (8)
  - BLOOD GLUCOSE INCREASED [None]
  - BLOOD PRESSURE SYSTOLIC DECREASED [None]
  - COLD SWEAT [None]
  - DIZZINESS [None]
  - HYPERHIDROSIS [None]
  - HYPOTENSION [None]
  - LEUKOPENIA [None]
  - THROMBOCYTOPENIA [None]
